FAERS Safety Report 12644434 (Version 6)
Quarter: 2016Q4

REPORT INFORMATION
  Report Type: Report from Study
  Country: LB (occurrence: LB)
  Receive Date: 20160811
  Receipt Date: 20161027
  Transmission Date: 20170207
  Serious: Yes (Disabling, Other)
  Sender: FDA-Public Use
  Company Number: PHHY2016LB051248

PATIENT
  Age: 76 Year
  Sex: Female

DRUGS (2)
  1. TASIGNA [Suspect]
     Active Substance: NILOTINIB
     Dosage: UNK
     Route: 048
     Dates: start: 20160416, end: 201607
  2. TASIGNA [Suspect]
     Active Substance: NILOTINIB
     Indication: CHRONIC MYELOID LEUKAEMIA
     Dosage: 300 MG, BID
     Route: 048
     Dates: end: 20160410

REACTIONS (9)
  - Visual impairment [Unknown]
  - Blindness unilateral [Not Recovered/Not Resolved]
  - Headache [Recovered/Resolved]
  - Vasculitis [Recovering/Resolving]
  - Cataract traumatic [Unknown]
  - Dermatitis allergic [Recovered/Resolved]
  - Swelling face [Recovered/Resolved]
  - Vision blurred [Recovering/Resolving]
  - Vitreous floaters [Unknown]

NARRATIVE: CASE EVENT DATE: 201607
